FAERS Safety Report 16742982 (Version 1)
Quarter: 2019Q3

REPORT INFORMATION
  Report Type: Spontaneous
  Country: US (occurrence: US)
  Receive Date: 20190827
  Receipt Date: 20190827
  Transmission Date: 20191005
  Serious: Yes (Hospitalization, Other)
  Sender: FDA-Public Use
  Company Number: US-SA-2019SA235148

PATIENT
  Age: 82 Year
  Sex: Male

DRUGS (7)
  1. PRALUENT [Suspect]
     Active Substance: ALIROCUMAB
     Indication: BLOOD CHOLESTEROL INCREASED
     Dosage: 75 MG, TWICE A MONTH
     Dates: start: 201904
  2. ESCITALOPRAM [Concomitant]
     Active Substance: ESCITALOPRAM OXALATE
     Indication: STRESS
  3. ESCITALOPRAM [Concomitant]
     Active Substance: ESCITALOPRAM OXALATE
     Indication: ANXIETY
  4. LOSARTAN. [Concomitant]
     Active Substance: LOSARTAN
  5. FENOFIBRATE. [Concomitant]
     Active Substance: FENOFIBRATE
  6. WARFARIN [Concomitant]
     Active Substance: WARFARIN
  7. PLAVIX [Concomitant]
     Active Substance: CLOPIDOGREL BISULFATE

REACTIONS (6)
  - Peripheral arterial occlusive disease [Unknown]
  - Prostatic disorder [Unknown]
  - Infection [Unknown]
  - Influenza like illness [Unknown]
  - Cardiac pacemaker insertion [Unknown]
  - Mitral valve disease [Unknown]

NARRATIVE: CASE EVENT DATE: 20190820
